FAERS Safety Report 9401947 (Version 1)
Quarter: 2013Q3

REPORT INFORMATION
  Report Type: Spontaneous
  Country: US (occurrence: US)
  Receive Date: 20130716
  Receipt Date: 20130716
  Transmission Date: 20140515
  Serious: No
  Sender: FDA-Public Use
  Company Number: US-PFIZER INC-2013205393

PATIENT
  Age: 79 Year
  Sex: Male

DRUGS (7)
  1. SUTENT [Suspect]
     Indication: RENAL CANCER
     Dosage: 50 MG, UNK
     Dates: start: 20130624
  2. ASPIRIN LOW DOSE [Concomitant]
     Dosage: UNK
  3. CARVEDILOL [Concomitant]
     Dosage: UNK
  4. HYDROCODONE-ACETAMINOPHEN [Concomitant]
     Dosage: UNK
  5. NABUMETONE [Concomitant]
     Dosage: UNK
  6. PRAVASTATIN SODIUM [Concomitant]
     Dosage: UNK
  7. QUINAPRIL HCL [Concomitant]
     Dosage: UNK

REACTIONS (1)
  - Hypertension [Unknown]
